FAERS Safety Report 8499417-8 (Version None)
Quarter: 2012Q3

REPORT INFORMATION
  Report Type: 
  Country: None (occurrence: None)
  Receive Date: 20120710
  Receipt Date: 20120705
  Transmission Date: 20120928
  Serious: Yes (Hospitalization)
  Sender: FDA-Public Use
  Company Number: US-AMGEN-USASP2012039415

PATIENT
  Age: 59 Year
  Sex: Female
  Weight: 75 kg

DRUGS (6)
  1. CITALOPRAM HYDROBROMIDE [Concomitant]
     Dosage: UNK UNK, QD
  2. MORPHINE [Concomitant]
     Dosage: UNK UNK, BID
  3. ENBREL [Suspect]
     Dosage: 50 MG, QWK
     Route: 058
     Dates: start: 20110101
  4. NAPROXEN [Concomitant]
     Dosage: UNK UNK, BID
  5. ENBREL [Suspect]
     Indication: RHEUMATOID ARTHRITIS
     Dosage: 50 MG, QWK
     Dates: start: 20100301
  6. ARAVA [Concomitant]
     Dosage: UNK UNK, QD

REACTIONS (13)
  - IMPAIRED HEALING [None]
  - BACK PAIN [None]
  - MOBILITY DECREASED [None]
  - INJECTION SITE PAIN [None]
  - SCIATICA [None]
  - INJECTION SITE PRURITUS [None]
  - PELVIC FRACTURE [None]
  - FALL [None]
  - OSTEOARTHRITIS [None]
  - PAIN IN EXTREMITY [None]
  - FRACTURE PAIN [None]
  - ARTHRALGIA [None]
  - INJECTION SITE MASS [None]
